FAERS Safety Report 18457924 (Version 1)
Quarter: 2020Q4

REPORT INFORMATION
  Report Type: Spontaneous
  Country: CA (occurrence: CA)
  Receive Date: 20201103
  Receipt Date: 20201103
  Transmission Date: 20210114
  Serious: Yes (Other)
  Sender: FDA-Public Use
  Company Number: CA-PFIZER INC-2020423204

PATIENT
  Age: 45 Year
  Sex: Female

DRUGS (2)
  1. METHOTREXATE SODIUM. [Suspect]
     Active Substance: METHOTREXATE SODIUM
     Indication: CUTANEOUS LUPUS ERYTHEMATOSUS
     Dosage: 10 MG, 2X/DAY (10 MG AM AND 10 MG PM ON FRIDAYS)
     Dates: start: 20200306, end: 202005
  2. FOLIC ACID. [Concomitant]
     Active Substance: FOLIC ACID
     Dosage: 5 MG, DAILY (EXCEPT METHOTREXATE DAYS)
     Route: 048

REACTIONS (11)
  - Photosensitivity reaction [Unknown]
  - Decreased appetite [Unknown]
  - Acute cutaneous lupus erythematosus [Recovering/Resolving]
  - Proteinuria [Unknown]
  - Double stranded DNA antibody positive [Unknown]
  - Joint stiffness [Unknown]
  - Off label use [Unknown]
  - Alopecia [Unknown]
  - Fatigue [Unknown]
  - Nausea [Unknown]
  - Product use in unapproved indication [Unknown]

NARRATIVE: CASE EVENT DATE: 2020
